FAERS Safety Report 13904495 (Version 1)
Quarter: 2017Q3

REPORT INFORMATION
  Report Type: Spontaneous
  Country: US (occurrence: US)
  Receive Date: 20170824
  Receipt Date: 20170824
  Transmission Date: 20171127
  Serious: Yes (Disabling)
  Sender: FDA-Public Use
  Company Number: None

PATIENT
  Age: 61 Year
  Sex: Female
  Weight: 85.05 kg

DRUGS (5)
  1. OMNISCAN [Suspect]
     Active Substance: GADODIAMIDE
     Indication: NUCLEAR MAGNETIC RESONANCE IMAGING
     Route: 042
     Dates: start: 20170822
  2. LIPITOR [Concomitant]
     Active Substance: ATORVASTATIN CALCIUM
  3. OMNISCAN [Suspect]
     Active Substance: GADODIAMIDE
     Indication: SCAN WITH CONTRAST
     Route: 042
     Dates: start: 20170822
  4. LOVAZZA [Concomitant]
  5. ASPIRIN. [Concomitant]
     Active Substance: ASPIRIN

REACTIONS (5)
  - Arthralgia [None]
  - Joint swelling [None]
  - Musculoskeletal pain [None]
  - Muscle twitching [None]
  - Headache [None]

NARRATIVE: CASE EVENT DATE: 20170822
